FAERS Safety Report 7241523-X (Version None)
Quarter: 2011Q1

REPORT INFORMATION
  Report Type: 
  Country: None (occurrence: None)
  Receive Date: 20110124
  Receipt Date: 20110117
  Transmission Date: 20110831
  Serious: Yes (Death, Other)
  Sender: FDA-Public Use
  Company Number: GB-BAXTER-2011BH001417

PATIENT
  Age: 29 Year
  Sex: Female

DRUGS (2)
  1. METRONIDAZOLE [Suspect]
     Indication: AMOEBIC DYSENTERY
     Route: 065
  2. METRONIDAZOLE [Suspect]
     Route: 065

REACTIONS (2)
  - AMOEBIC DYSENTERY [None]
  - DRUG INEFFECTIVE [None]
